FAERS Safety Report 11360963 (Version 4)
Quarter: 2015Q4

REPORT INFORMATION
  Report Type: Spontaneous
  Country: JP (occurrence: JP)
  Receive Date: 20150810
  Receipt Date: 20151215
  Transmission Date: 20160304
  Serious: Yes (Hospitalization, Other)
  Sender: FDA-Public Use
  Company Number: JP-PFIZER INC-2015261810

PATIENT
  Age: 61 Year
  Sex: Female
  Weight: 68.1 kg

DRUGS (14)
  1. EPERISONE HYDROCHLORIDE [Suspect]
     Active Substance: EPERISONE HYDROCHLORIDE
     Dosage: 150 MG, DAILY
     Route: 048
     Dates: end: 20150728
  2. ZYPREXA [Suspect]
     Active Substance: OLANZAPINE
     Indication: DEPRESSION
     Dosage: 5 MG, 1X/DAY
     Route: 048
     Dates: end: 20150728
  3. REBAMIPIDE [Suspect]
     Active Substance: REBAMIPIDE
     Dosage: 300 MG, 3X/DAY
     Route: 048
     Dates: end: 20150728
  4. RIVOTRIL [Suspect]
     Active Substance: CLONAZEPAM
     Indication: DEPRESSION
     Dosage: 1 MG, 3X/DAY
     Route: 048
     Dates: end: 20150728
  5. LOXOPROFEN [Suspect]
     Active Substance: LOXOPROFEN
     Dosage: 180 MG, DAILY
     Route: 048
     Dates: end: 20150728
  6. LIMAS [Suspect]
     Active Substance: LITHIUM CARBONATE
     Indication: DEPRESSION
     Dosage: 400 MG, 2X/DAY
     Route: 048
     Dates: end: 20150728
  7. EURODIN [Suspect]
     Active Substance: ESTAZOLAM
     Indication: DEPRESSION
     Dosage: 2 MG, DAILY
     Route: 048
     Dates: end: 20150728
  8. ROHYPNOL [Suspect]
     Active Substance: FLUNITRAZEPAM
     Indication: DEPRESSION
     Dosage: 1 MG, DAILY
     Route: 048
     Dates: end: 20150728
  9. CETILO [Suspect]
     Active Substance: SENNA LEAF
     Dosage: 6 DF, 3X/DAY
     Route: 048
     Dates: end: 20150728
  10. JZOLOFT OD [Suspect]
     Active Substance: SERTRALINE HYDROCHLORIDE
     Indication: DEPRESSION
     Dosage: 100 MG, 1X/DAY
     Route: 048
     Dates: end: 20150728
  11. VEGETAMIN B [Suspect]
     Active Substance: CHLORPROMAZINE HYDROCHLORIDE\PHENOBARBITAL\PROMETHAZINE
     Indication: DEPRESSION
     Dosage: 1 DF, DAILY
     Route: 048
     Dates: end: 20150728
  12. SENNOSIDE A+B [Suspect]
     Active Substance: SENNOSIDES A AND B
     Dosage: 24 MG, 1X/DAY
     Route: 048
     Dates: end: 20150728
  13. TAKEPRON OD [Suspect]
     Active Substance: LANSOPRAZOLE
     Dosage: 15 MG, 1X/DAY
     Route: 048
     Dates: end: 20150728
  14. VEGETAMIN A [Suspect]
     Active Substance: CHLORPROMAZINE HYDROCHLORIDE\PHENOBARBITAL\PROMETHAZINE
     Indication: DEPRESSION
     Dosage: 1 DF, DAILY
     Route: 048
     Dates: end: 20150728

REACTIONS (3)
  - Water intoxication [Recovered/Resolved]
  - Neuroleptic malignant syndrome [Recovering/Resolving]
  - Hyponatraemia [Recovered/Resolved]

NARRATIVE: CASE EVENT DATE: 20100728
